FAERS Safety Report 14290848 (Version 1)
Quarter: 2017Q4

REPORT INFORMATION
  Report Type: Spontaneous
  Country: US (occurrence: US)
  Receive Date: 20171215
  Receipt Date: 20171215
  Transmission Date: 20180321
  Serious: Yes (Other)
  Sender: FDA-Public Use
  Company Number: US-JNJFOC-20171215964

PATIENT
  Age: 31 Year
  Sex: Female
  Weight: 94.35 kg

DRUGS (2)
  1. STELARA [Suspect]
     Active Substance: USTEKINUMAB
     Indication: PSORIATIC ARTHROPATHY
     Route: 058
     Dates: start: 201701, end: 2017
  2. STELARA [Suspect]
     Active Substance: USTEKINUMAB
     Indication: SYSTEMIC LUPUS ERYTHEMATOSUS
     Route: 058
     Dates: start: 201701, end: 2017

REACTIONS (3)
  - Incorrect dose administered [Unknown]
  - Metabolic surgery [Unknown]
  - Off label use [Unknown]

NARRATIVE: CASE EVENT DATE: 201701
